FAERS Safety Report 6875657-6 (Version None)
Quarter: 2010Q3

REPORT INFORMATION
  Report Type: 
  Country: None (occurrence: None)
  Receive Date: 20100727
  Receipt Date: 20100719
  Transmission Date: 20110219
  Serious: Yes (Other)
  Sender: FDA-Public Use
  Company Number: CA-ASTRAZENECA-2010SE33620

PATIENT
  Age: 43 Year
  Sex: Male

DRUGS (1)
  1. ATACAND [Suspect]
     Indication: BLOOD PRESSURE
     Route: 048
     Dates: start: 20100401

REACTIONS (3)
  - DEHYDRATION [None]
  - HYPERHIDROSIS [None]
  - SWEAT DISCOLOURATION [None]
